FAERS Safety Report 8885686 (Version 1)
Quarter: 2012Q4

REPORT INFORMATION
  Report Type: 
  Country: FR (occurrence: FR)
  Receive Date: 20121105
  Receipt Date: 20121105
  Transmission Date: 20130627
  Serious: Yes (Hospitalization)
  Sender: FDA-Public Use
  Company Number: PHHY2012FR100485

PATIENT
  Age: 61 Year
  Sex: Male

DRUGS (15)
  1. TEGRETOL [Suspect]
     Indication: RESTLESS LEGS SYNDROME
     Route: 048
     Dates: start: 20110725, end: 20110729
  2. ELISOR [Concomitant]
     Dosage: 40 mg, daily
  3. TRIATEC [Concomitant]
     Dosage: 10 mg, daily
  4. NOVOMIX [Concomitant]
  5. INSULATARD [Concomitant]
  6. PLAVIX [Concomitant]
     Dosage: 75 mg, daily
  7. DETENSIEL [Concomitant]
     Dosage: 10 mg, daily
  8. REQUIP LP [Concomitant]
     Dosage: 4 mg, daily
  9. RIVOTRIL [Concomitant]
     Dosage: 30 drp, in evening
  10. LEXOMIL [Concomitant]
     Dosage: 0.5 DF, in the evening
  11. TERCIAN [Concomitant]
     Dosage: 25 mg, in the evening
  12. IXPRIM [Concomitant]
     Dosage: 2 DF, in the evening
  13. ADARTREL [Concomitant]
     Dosage: 6 mg, daily
  14. IMOVANE [Concomitant]
     Dosage: 0.5 DF, in the evening
  15. INEXIUM [Concomitant]
     Dosage: 20 mg, daily

REACTIONS (9)
  - Cerebellar syndrome [Recovered/Resolved]
  - Balance disorder [Recovered/Resolved]
  - Sensation of heaviness [Unknown]
  - Dysarthria [Recovered/Resolved]
  - Iron deficiency [Unknown]
  - Cholestasis [Recovered/Resolved]
  - Hepatocellular injury [Recovered/Resolved]
  - Drug level increased [Unknown]
  - Overdose [Unknown]
